FAERS Safety Report 16974757 (Version 2)
Quarter: 2019Q4

REPORT INFORMATION
  Report Type: Spontaneous
  Country: CN (occurrence: CN)
  Receive Date: 20191030
  Receipt Date: 20191113
  Transmission Date: 20200122
  Serious: Yes (Other)
  Sender: FDA-Public Use
  Company Number: CN-SA-2019SA294373

PATIENT
  Age: 43 Year
  Sex: Female

DRUGS (9)
  1. TETRAHYDROPALMATINE [Suspect]
     Active Substance: TETRAHYDROPALMATINE
     Indication: METASTASES TO LYMPH NODES
  2. LIPIODOL [Suspect]
     Active Substance: ETHIODIZED OIL
     Indication: SMALL INTESTINE LEIOMYOSARCOMA
     Dosage: UNK, UNK
     Route: 065
  3. OXALIPLATIN. [Suspect]
     Active Substance: OXALIPLATIN
     Indication: METASTASES TO LYMPH NODES
     Dosage: UNK UNK, UNK
  4. TETRAHYDROPALMATINE [Suspect]
     Active Substance: TETRAHYDROPALMATINE
     Indication: SMALL INTESTINE LEIOMYOSARCOMA
     Dosage: EMULSION
     Route: 065
  5. OXALIPLATIN. [Suspect]
     Active Substance: OXALIPLATIN
     Indication: METASTASES TO LIVER
  6. OXALIPLATIN. [Suspect]
     Active Substance: OXALIPLATIN
     Indication: SMALL INTESTINE LEIOMYOSARCOMA
  7. TETRAHYDROPALMATINE [Suspect]
     Active Substance: TETRAHYDROPALMATINE
     Indication: METASTASES TO LIVER
  8. LIPIODOL [Suspect]
     Active Substance: ETHIODIZED OIL
     Indication: METASTASES TO LYMPH NODES
  9. LIPIODOL [Suspect]
     Active Substance: ETHIODIZED OIL
     Indication: METASTASES TO LIVER

REACTIONS (1)
  - Hepatotoxicity [Unknown]
